FAERS Safety Report 6279444-1 (Version None)
Quarter: 2009Q3

REPORT INFORMATION
  Report Type: 
  Country: None (occurrence: None)
  Receive Date: 20090723
  Receipt Date: 20090718
  Transmission Date: 20100115
  Serious: Yes (Hospitalization, Other)
  Sender: FDA-Public Use
  Company Number: CH-ABBOTT-09P-151-0571003-00

PATIENT
  Sex: Female

DRUGS (9)
  1. HUMIRA [Suspect]
     Indication: RHEUMATOID ARTHRITIS
     Dates: start: 20030101, end: 20081201
  2. DEXAMETHASONE [Concomitant]
     Indication: DRUG USE FOR UNKNOWN INDICATION
  3. TEMOZOLOMID [Concomitant]
     Indication: DRUG USE FOR UNKNOWN INDICATION
  4. LEVETRIACETAM [Concomitant]
     Indication: DRUG USE FOR UNKNOWN INDICATION
  5. PHENYTOIN [Concomitant]
     Indication: DRUG USE FOR UNKNOWN INDICATION
  6. METOCLOPRAMIDE [Concomitant]
     Indication: DRUG USE FOR UNKNOWN INDICATION
  7. ZOLPIDEM [Concomitant]
     Indication: DRUG USE FOR UNKNOWN INDICATION
  8. TRIMETHOPRIM/SULFAMETHOXAZOL [Concomitant]
     Indication: DRUG USE FOR UNKNOWN INDICATION
  9. CLOPIDOGREL [Concomitant]
     Indication: DRUG USE FOR UNKNOWN INDICATION

REACTIONS (3)
  - APHASIA [None]
  - FINE MOTOR DELAY [None]
  - GLIOBLASTOMA MULTIFORME [None]
